FAERS Safety Report 6715507-1 (Version None)
Quarter: 2010Q2

REPORT INFORMATION
  Report Type: 
  Country: None (occurrence: None)
  Receive Date: 20100507
  Receipt Date: 20100426
  Transmission Date: 20101027
  Serious: Yes (Other)
  Sender: FDA-Public Use
  Company Number: PHHY2010CA22155

PATIENT
  Sex: Male

DRUGS (2)
  1. CLOZARIL [Suspect]
     Indication: SCHIZOPHRENIA
     Dosage: UNK
     Dates: start: 19990706
  2. CLOZARIL [Suspect]
     Dosage: 600 MG
     Route: 048

REACTIONS (3)
  - FRACTURE [None]
  - ROAD TRAFFIC ACCIDENT [None]
  - SURGERY [None]
